FAERS Safety Report 5666597-9 (Version None)
Quarter: 2008Q1

REPORT INFORMATION
  Report Type: 
  Country: None (occurrence: None)
  Receive Date: 20080315
  Receipt Date: 20071219
  Transmission Date: 20080703
  Serious: No
  Sender: FDA-Public Use
  Company Number: US-ABBOTT-07P-163-0431195-00

PATIENT
  Sex: Female
  Weight: 63.56 kg

DRUGS (4)
  1. HUMIRA [Suspect]
     Indication: CROHN'S DISEASE
     Route: 058
     Dates: start: 20070618, end: 20070618
  2. HUMIRA [Suspect]
     Route: 058
     Dates: start: 20070712, end: 20070712
  3. HUMIRA [Suspect]
     Route: 058
     Dates: start: 20070701
  4. 35 OTHER MEDICATIONS [Concomitant]
     Indication: DRUG USE FOR UNKNOWN INDICATION

REACTIONS (8)
  - ABDOMINAL PAIN [None]
  - ARTHRITIS [None]
  - DIARRHOEA [None]
  - GASTROINTESTINAL DISORDER [None]
  - HUNGER [None]
  - MIGRAINE [None]
  - ORAL INTAKE REDUCED [None]
  - PAIN [None]
